FAERS Safety Report 9663912 (Version 1)
Quarter: 2013Q4

REPORT INFORMATION
  Report Type: Spontaneous
  Country: US (occurrence: None)
  Receive Date: 20131030
  Receipt Date: 20131030
  Transmission Date: 20140711
  Serious: No
  Sender: FDA-Public Use
  Company Number: None

PATIENT
  Age: 62 Year
  Sex: Female
  Weight: 79.38 kg

DRUGS (2)
  1. TRAMADOL [Suspect]
     Indication: PAIN
     Route: 048
     Dates: start: 20131004, end: 20131005
  2. TYLENOL [Concomitant]

REACTIONS (12)
  - Dizziness [None]
  - Visual impairment [None]
  - Nausea [None]
  - Crying [None]
  - Agitation [None]
  - Hyperhidrosis [None]
  - Pyrexia [None]
  - Tremor [None]
  - Pruritus [None]
  - Confusional state [None]
  - Headache [None]
  - Sleep disorder [None]
